FAERS Safety Report 19752009 (Version 4)
Quarter: 2023Q4

REPORT INFORMATION
  Report Type: Spontaneous
  Country: US (occurrence: None)
  Receive Date: 20210827
  Receipt Date: 20231201
  Transmission Date: 20240109
  Serious: Yes (Other)
  Sender: FDA-Public Use
  Company Number: US-SAPTALIS PHARMACEUTICALS,LLC-000106

PATIENT
  Age: 95 Year
  Sex: Male

DRUGS (1)
  1. METFORMIN [Suspect]
     Active Substance: METFORMIN HYDROCHLORIDE
     Indication: Product used for unknown indication
     Dosage: 500 MG TWICE DAILY

REACTIONS (1)
  - Diabetes mellitus inadequate control [Unknown]
